FAERS Safety Report 15901146 (Version 1)
Quarter: 2019Q1

REPORT INFORMATION
  Report Type: Spontaneous
  Country: CA (occurrence: CA)
  Receive Date: 20190201
  Receipt Date: 20190201
  Transmission Date: 20190417
  Serious: Yes (Other)
  Sender: FDA-Public Use
  Company Number: PHHY2019CA016469

PATIENT
  Age: 47 Year
  Sex: Female

DRUGS (2)
  1. COCAINE [Suspect]
     Active Substance: COCAINE
     Indication: PRODUCT USED FOR UNKNOWN INDICATION
     Route: 006
  2. PARACETAMOL [Suspect]
     Active Substance: ACETAMINOPHEN
     Indication: PRODUCT USED FOR UNKNOWN INDICATION
     Route: 006

REACTIONS (10)
  - Poor quality sleep [Unknown]
  - Pharyngeal disorder [Unknown]
  - Pharyngeal stenosis [Recovering/Resolving]
  - Anosmia [Recovering/Resolving]
  - Dry mouth [Unknown]
  - Snoring [Unknown]
  - Palatal disorder [Unknown]
  - Nasal obstruction [Recovering/Resolving]
  - Nasal congestion [Recovering/Resolving]
  - Velopharyngeal incompetence [Recovering/Resolving]
